FAERS Safety Report 8199656-X (Version None)
Quarter: 2012Q1

REPORT INFORMATION
  Report Type: 
  Country: None (occurrence: None)
  Receive Date: 20120311
  Receipt Date: 20120301
  Transmission Date: 20120608
  Serious: Yes (Hospitalization, Other)
  Sender: FDA-Public Use
  Company Number: US-ASTRAZENECA-2008UW00803

PATIENT
  Age: 55 Year
  Sex: Female
  Weight: 54.4 kg

DRUGS (24)
  1. ZYPREXA [Concomitant]
     Indication: SLEEP DISORDER
  2. HYDROCODONE BITARTRATE [Concomitant]
     Dosage: 7.5/ 30,5/500, 5-325,7.5 / 500 , 10/ 325
     Dates: start: 20041108
  3. TRAMADOL HCL/TRAMADOL /ALTRAM [Concomitant]
     Dates: end: 20091231
  4. GABAPENTIN [Concomitant]
     Dates: start: 20090401
  5. XANAX [Concomitant]
     Route: 048
     Dates: start: 20040629
  6. DIPHENHYDRAMINE HCL [Concomitant]
     Dates: start: 20051103
  7. TRAMADOL HCL/TRAMADOL /ALTRAM [Concomitant]
     Indication: INTERVERTEBRAL DISC PROTRUSION
     Dates: start: 20060824
  8. HYDROCHLOROTHIAZIDE [Concomitant]
     Dates: start: 20070820
  9. HYDROCHLOROTHIAZIDE [Concomitant]
     Dates: start: 20080828
  10. LITHIUM CARBONATE [Concomitant]
     Indication: MOOD SWINGS
     Dosage: 300-600 MG DAILY
     Dates: start: 20040427
  11. ACETAMINOPHEN [Concomitant]
     Dates: start: 20060427
  12. DIAZEPAM [Concomitant]
     Dosage: 05 MG TO 10 MG
     Route: 048
     Dates: start: 20070425
  13. SEROQUEL [Suspect]
     Dosage: 100-300 MG AT NIGHT
     Route: 048
     Dates: start: 20040629
  14. SEROQUEL [Suspect]
     Route: 048
     Dates: start: 20091231
  15. TRAMADOL HCL/TRAMADOL /ALTRAM [Concomitant]
     Dates: start: 20070409
  16. XANAX [Concomitant]
     Indication: ANXIETY
     Route: 048
     Dates: start: 20040401
  17. HYDROCODONE BITARTRATE [Concomitant]
     Dosage: 10/325
     Dates: start: 20070409
  18. CELEXA [Concomitant]
     Indication: AFFECTIVE DISORDER
     Dates: start: 20040427
  19. METHOCARBAMOL [Concomitant]
     Dates: start: 20070814
  20. SEROQUEL [Suspect]
     Indication: SLEEP DISORDER
     Dosage: 25 MG TID/PRN
     Route: 048
     Dates: start: 20040427
  21. PROZAC [Concomitant]
     Route: 048
     Dates: start: 20040629
  22. AMITRIPTYLINE HCL [Concomitant]
     Dates: start: 20070814
  23. PERCOCET [Concomitant]
     Dosage: 10/325 MG QID
     Route: 048
     Dates: start: 20091231
  24. TALAMOLPIUM [Concomitant]
     Indication: SLEEP DISORDER

REACTIONS (9)
  - DIABETES MELLITUS [None]
  - FOOT FRACTURE [None]
  - LOSS OF CONSCIOUSNESS [None]
  - EXCORIATION [None]
  - OPEN WOUND [None]
  - ROAD TRAFFIC ACCIDENT [None]
  - BACK PAIN [None]
  - OFF LABEL USE [None]
  - DRUG HYPERSENSITIVITY [None]
